FAERS Safety Report 20253254 (Version 5)
Quarter: 2023Q1

REPORT INFORMATION
  Report Type: Report from Study
  Country: FR (occurrence: FR)
  Receive Date: 20211230
  Receipt Date: 20230310
  Transmission Date: 20230418
  Serious: Yes (Hospitalization)
  Sender: FDA-Public Use
  Company Number: FR-002147023-NVSC2021FR295631

PATIENT
  Age: 2 Year
  Sex: Female
  Weight: 13 kg

DRUGS (16)
  1. VENETOCLAX [Suspect]
     Active Substance: VENETOCLAX
     Indication: Angiocentric lymphoma refractory
     Dosage: 120 MG, QD
     Route: 048
     Dates: start: 20210616, end: 20210616
  2. VENETOCLAX [Suspect]
     Active Substance: VENETOCLAX
     Indication: Angiocentric lymphoma refractory
     Dosage: 250 MG, QD
     Route: 048
     Dates: start: 20210617, end: 20210906
  3. CYCLOPHOSPHAMIDE [Suspect]
     Active Substance: CYCLOPHOSPHAMIDE
     Indication: Angiocentric lymphoma refractory
     Dosage: 183.7 MG/M2 (GIVEN FOR 5 DAYS EVERY 21 DAYS), MEDICATION ERROR
     Route: 042
     Dates: start: 20210802, end: 20210904
  4. CYCLOPHOSPHAMIDE [Suspect]
     Active Substance: CYCLOPHOSPHAMIDE
     Indication: Angiocentric lymphoma refractory
     Dosage: 250 MG/M2 (GIVEN FOR 5 DAYS EVERY 21 DAYS), MEDICATION ERROR
     Route: 042
     Dates: start: 20210618, end: 20210716
  5. TOPOTECAN HYDROCHLORIDE [Suspect]
     Active Substance: TOPOTECAN HYDROCHLORIDE
     Indication: Angiocentric lymphoma refractory
     Dosage: 0.75 MG/M2 (GIVEN FOR 5 DAYS EVERY 21 DAYS), MEDICATION ERROR
     Route: 042
     Dates: start: 20210618, end: 20210716
  6. TOPOTECAN HYDROCHLORIDE [Suspect]
     Active Substance: TOPOTECAN HYDROCHLORIDE
     Indication: Angiocentric lymphoma refractory
     Dosage: 0.55 MG/M2 (GIVEN FOR 5 DAYS EVERY 21 DAYS)
     Route: 042
     Dates: start: 20210802, end: 20210904
  7. SOLUPRED [Concomitant]
     Indication: Nausea
     Dosage: 20 MG (1 AS REQUIRED)
     Route: 048
     Dates: start: 20210621
  8. CYCLOPHOSPHAMIDE [Suspect]
     Active Substance: CYCLOPHOSPHAMIDE
     Indication: Neuroblastoma
     Dosage: 250 MG/M2 (GIVEN FOR 5 DAYS EVERY 21 DAYS )
     Route: 042
     Dates: start: 20210618, end: 20210716
  9. CYCLOPHOSPHAMIDE [Suspect]
     Active Substance: CYCLOPHOSPHAMIDE
     Indication: Neuroblastoma
     Dosage: UNK
     Route: 065
     Dates: start: 20210421, end: 20210515
  10. CYCLOPHOSPHAMIDE [Suspect]
     Active Substance: CYCLOPHOSPHAMIDE
     Indication: Neuroblastoma
     Dosage: 183.7 MG/M2 (GIVEN FOR 5 DAYS EVERY 21 DAYS)
     Route: 042
     Dates: start: 20210802, end: 20210904
  11. NUTRINI [Concomitant]
     Indication: Enteral nutrition
     Dosage: 30 ML/HOUR DURING THE NIGHT
     Route: 065
     Dates: start: 20210718, end: 20210907
  12. NUTRINI [Concomitant]
     Indication: Enteral nutrition
     Dosage: 240 ML, QD
     Route: 042
     Dates: start: 20210619, end: 20210717
  13. NUTRINI [Concomitant]
     Indication: Enteral nutrition
     Dosage: 400 ML (200 ML,2 IN 1 D)
     Route: 065
     Dates: start: 20210718
  14. DOXORUBICIN HYDROCHLORIDE [Suspect]
     Active Substance: DOXORUBICIN HYDROCHLORIDE
     Indication: Neuroblastoma
     Dosage: UNK
     Route: 065
     Dates: start: 20210421, end: 20210515
  15. ETOPOSIDE [Suspect]
     Active Substance: ETOPOSIDE
     Indication: Neuroblastoma
     Dosage: UNK
     Route: 065
     Dates: start: 20210304, end: 20210401
  16. METHYLPREDNISOLONE [Concomitant]
     Active Substance: METHYLPREDNISOLONE
     Indication: Nausea
     Dosage: 10 MG (1 AS REQUIRED)
     Route: 050
     Dates: start: 20210819

REACTIONS (5)
  - Dehydration [Recovered/Resolved]
  - Clostridium colitis [Recovered/Resolved]
  - Diarrhoea [Recovered/Resolved]
  - Product use issue [Unknown]
  - Vomiting [Unknown]

NARRATIVE: CASE EVENT DATE: 20210902
